FAERS Safety Report 15106014 (Version 2)
Quarter: 2018Q3

REPORT INFORMATION
  Report Type: Spontaneous
  Country: US (occurrence: US)
  Receive Date: 20180704
  Receipt Date: 20180821
  Transmission Date: 20181010
  Serious: Yes (Other)
  Sender: FDA-Public Use
  Company Number: US-PFIZER INC-2018254655

PATIENT
  Age: 44 Year
  Sex: Male

DRUGS (23)
  1. NEXIUM [Suspect]
     Active Substance: ESOMEPRAZOLE MAGNESIUM
     Indication: GASTROOESOPHAGEAL REFLUX DISEASE
     Dosage: 40 MG, UNK
     Dates: start: 20101007
  2. CLONIDINE. [Concomitant]
     Active Substance: CLONIDINE
     Indication: HYPERTENSION
     Dosage: UNK
     Dates: start: 2011
  3. TORSEMIDE. [Concomitant]
     Active Substance: TORSEMIDE
     Indication: FLUID RETENTION
     Dosage: UNK
     Dates: start: 2011
  4. AZITHROMYCIN ANHYDROUS. [Concomitant]
     Active Substance: AZITHROMYCIN ANHYDROUS
     Indication: ANTIBIOTIC THERAPY
     Dosage: UNK
  5. OXYCODONE [Concomitant]
     Active Substance: OXYCODONE
     Indication: PAIN
     Dosage: UNK UNK, AS NEEDED
     Dates: end: 2016
  6. ESOMEPRAZOLE [Suspect]
     Active Substance: ESOMEPRAZOLE
     Indication: GASTROOESOPHAGEAL REFLUX DISEASE
     Dosage: 40 MG, UNK
  7. ASPIRIN. [Concomitant]
     Active Substance: ASPIRIN
     Indication: CARDIAC DISORDER
     Dosage: UNK
  8. LYRICA [Concomitant]
     Active Substance: PREGABALIN
     Indication: NEURALGIA
     Dosage: UNK, AS NEEDED
     Dates: end: 2016
  9. PROTONIX [Suspect]
     Active Substance: PANTOPRAZOLE SODIUM
     Indication: GASTROOESOPHAGEAL REFLUX DISEASE
     Dosage: UNK
  10. IBUPROFEN. [Concomitant]
     Active Substance: IBUPROFEN
     Indication: ANALGESIC THERAPY
     Dosage: UNK
  11. ZANTAC 75 (OTC) [Concomitant]
     Dosage: UNK
  12. LEVOFLOXACIN. [Concomitant]
     Active Substance: LEVOFLOXACIN
     Indication: ANTIBIOTIC THERAPY
     Dosage: UNK
     Dates: start: 2013
  13. OXYCODONE AND ACETAMINOPHEN [Concomitant]
     Active Substance: ACETAMINOPHEN\OXYCODONE HYDROCHLORIDE
     Indication: PAIN
     Dosage: UNK UNK, AS NEEDED
     Dates: start: 2011
  14. QUINAPRIL. [Concomitant]
     Active Substance: QUINAPRIL
     Dosage: UNK
     Dates: start: 2012
  15. VOLTAREN [Concomitant]
     Active Substance: DICLOFENAC SODIUM
     Indication: ANALGESIC THERAPY
     Dosage: UNK
     Dates: start: 2013
  16. TORSEMIDE. [Concomitant]
     Active Substance: TORSEMIDE
     Dosage: UNK
     Dates: start: 20110926
  17. ATORVASTATIN [Concomitant]
     Active Substance: ATORVASTATIN
     Indication: BLOOD CHOLESTEROL INCREASED
     Dosage: UNK
  18. HUMULIN NOS [Concomitant]
     Active Substance: INSULIN HUMAN
     Indication: DIABETES MELLITUS
     Dosage: UNK
     Dates: start: 2011
  19. OXYCONTIN [Concomitant]
     Active Substance: OXYCODONE HYDROCHLORIDE
     Indication: PAIN
     Dosage: UNK, AS NEEDED
     Dates: start: 2011
  20. QUINAPRIL. [Concomitant]
     Active Substance: QUINAPRIL
     Indication: HYPERTENSION
     Dosage: UNK
     Dates: start: 2011
  21. NAPROXEN. [Concomitant]
     Active Substance: NAPROXEN
     Indication: PAIN
     Dosage: UNK
     Dates: start: 2014, end: 2015
  22. GABAPENTIN. [Concomitant]
     Active Substance: GABAPENTIN
     Indication: NEURALGIA
     Dosage: UNK UNK, AS NEEDED
     Dates: end: 2016
  23. AMOXICILLIN. [Concomitant]
     Active Substance: AMOXICILLIN
     Indication: ANTIBIOTIC THERAPY
     Dosage: UNK

REACTIONS (1)
  - Chronic kidney disease [Not Recovered/Not Resolved]

NARRATIVE: CASE EVENT DATE: 201409
